FAERS Safety Report 15802091 (Version 1)
Quarter: 2019Q1

REPORT INFORMATION
  Report Type: Spontaneous
  Country: US (occurrence: US)
  Receive Date: 20190107
  Receipt Date: 20190107
  Transmission Date: 20190417
  Serious: No
  Sender: FDA-Public Use
  Company Number: None

PATIENT

DRUGS (2)
  1. PEDIA-LAX (GLYCERIN) [Suspect]
     Active Substance: GLYCERIN
     Dosage: OTHER: 6 APPLICATIONS
     Route: 054
  2. PEDIA-LAX (GLYCERIN) [Suspect]
     Active Substance: GLYCERIN
     Dosage: OTHER: 12 SUPPOSITORIES
     Route: 054

REACTIONS (3)
  - Product use complaint [None]
  - Wrong product stored [None]
  - Product appearance confusion [None]
